FAERS Safety Report 15478584 (Version 4)
Quarter: 2019Q2

REPORT INFORMATION
  Report Type: Spontaneous
  Country: JP (occurrence: JP)
  Receive Date: 20181009
  Receipt Date: 20190508
  Transmission Date: 20190711
  Serious: Yes (Other)
  Sender: FDA-Public Use
  Company Number: JP-CELGENEUS-JPN-20181000445

PATIENT
  Age: 76 Year
  Sex: Male
  Weight: 60 kg

DRUGS (92)
  1. FEBUXOSTAT. [Concomitant]
     Active Substance: FEBUXOSTAT
     Indication: TUMOUR LYSIS SYNDROME
     Dosage: 60 MILLIGRAM
     Route: 048
     Dates: start: 20180728, end: 20180815
  2. REBAMIPIDE [Concomitant]
     Active Substance: REBAMIPIDE
     Indication: CHRONIC GASTRITIS
     Dosage: 300 MILLIGRAM
     Route: 048
     Dates: start: 20180801
  3. ISOTONIC SODIUM CHLORIDE [Concomitant]
     Active Substance: SODIUM CHLORIDE
     Dosage: 20 MILLILITER
     Route: 041
     Dates: start: 20180805
  4. SODIUM PHOSPHATE [Concomitant]
     Active Substance: SODIUM PHOSPHATE
     Dosage: 80 MILLILITER
     Route: 041
     Dates: start: 20180916, end: 20180916
  5. GASCON [Concomitant]
     Active Substance: DIMETHICONE
     Indication: CHRONIC GASTRITIS
     Dosage: 40 MILLIGRAM
     Route: 048
     Dates: start: 20180907, end: 20181003
  6. CRAVIT [Concomitant]
     Active Substance: LEVOFLOXACIN
     Indication: INFECTION PROPHYLAXIS
     Dosage: 500 MILLIGRAM
     Route: 041
     Dates: start: 20180914
  7. CALONAL [Concomitant]
     Active Substance: ACETAMINOPHEN
     Dosage: 400 MILLIGRAM
     Route: 048
     Dates: start: 20180929, end: 20180930
  8. METHYLPREDNISOLONE SODIUM SUCCINATE. [Concomitant]
     Active Substance: METHYLPREDNISOLONE SODIUM SUCCINATE
     Indication: ORGANISING PNEUMONIA
     Dosage: 60 MILLIGRAM
     Route: 041
     Dates: start: 20181231
  9. AZACITIDINE. [Suspect]
     Active Substance: AZACITIDINE
     Dosage: 75 MILLIGRAM/SQ. METER
     Route: 041
     Dates: start: 20181112, end: 20181118
  10. AZELNIDIPINE [Concomitant]
     Active Substance: AZELNIDIPINE
     Indication: HYPERTENSION
     Dosage: 16 MILLIGRAM
     Route: 048
     Dates: start: 20180730
  11. LANSOPRAZOLE. [Concomitant]
     Active Substance: LANSOPRAZOLE
     Indication: CHRONIC GASTRITIS
     Dosage: 30 MILLIGRAM
     Route: 048
     Dates: start: 20180801
  12. CALCICOL [Concomitant]
     Active Substance: CALCIUM GLUCONATE
     Indication: HYPOCALCAEMIA
     Dosage: 15 MILLILITER
     Route: 041
     Dates: start: 20180917, end: 20180921
  13. CALCICOL [Concomitant]
     Active Substance: CALCIUM GLUCONATE
     Dosage: 30 MILLILITER
     Route: 041
     Dates: start: 20181208, end: 20181221
  14. ZOSYN [Concomitant]
     Active Substance: PIPERACILLIN SODIUM\TAZOBACTAM SODIUM
     Indication: FEBRILE NEUTROPENIA
     Dosage: 4.5 GRAM
     Route: 041
     Dates: start: 20180731, end: 20180731
  15. ZOSYN [Concomitant]
     Active Substance: PIPERACILLIN SODIUM\TAZOBACTAM SODIUM
     Dosage: 9 GRAM
     Route: 041
     Dates: start: 20180914, end: 20180914
  16. ISOTONIC SODIUM CHLORIDE [Concomitant]
     Active Substance: SODIUM CHLORIDE
     Dosage: 200 MILLILITER
     Route: 041
     Dates: start: 20180805
  17. SODIUM PHOSPHATE [Concomitant]
     Active Substance: SODIUM PHOSPHATE
     Dosage: 60 MILLILITER
     Route: 041
     Dates: start: 20180810, end: 20180817
  18. SODIUM PHOSPHATE [Concomitant]
     Active Substance: SODIUM PHOSPHATE
     Dosage: 120 MILLILITER
     Route: 041
     Dates: start: 20180917, end: 20180917
  19. SODIUM PHOSPHATE [Concomitant]
     Active Substance: SODIUM PHOSPHATE
     Dosage: 80 MILLILITER
     Route: 041
     Dates: start: 20180923, end: 20180925
  20. SODIUM PHOSPHATE [Concomitant]
     Active Substance: SODIUM PHOSPHATE
     Dosage: 80 MILLILITER
     Route: 041
     Dates: start: 20180927, end: 20180927
  21. SODIUM PHOSPHATE [Concomitant]
     Active Substance: SODIUM PHOSPHATE
     Dosage: 160 MILLILITER
     Route: 041
     Dates: start: 20181003, end: 20181005
  22. SODIUM PHOSPHATE [Concomitant]
     Active Substance: SODIUM PHOSPHATE
     Dosage: 180 MILLILITER
     Route: 041
     Dates: start: 20181014
  23. BESOFTEN [Concomitant]
     Active Substance: PENTOSAN POLYSULFATE SODIUM
     Indication: DRY SKIN
     Dosage: .3 PERCENT
     Route: 061
     Dates: start: 20181202
  24. MINOCYCLINE HCL [Concomitant]
     Active Substance: MINOCYCLINE HYDROCHLORIDE
     Dosage: 100 MILLIGRAM
     Route: 041
     Dates: start: 20190101, end: 20190101
  25. DAPTOMYCIN. [Concomitant]
     Active Substance: DAPTOMYCIN
     Dosage: 350 MILLIGRAM
     Route: 041
     Dates: start: 20181226
  26. AZACITIDINE. [Suspect]
     Active Substance: AZACITIDINE
     Indication: ACUTE MYELOID LEUKAEMIA
     Dosage: 75 MILLIGRAM/SQ. METER
     Route: 041
     Dates: start: 20180731, end: 20180906
  27. VENETOCLAX. [Concomitant]
     Active Substance: VENETOCLAX
     Indication: ACUTE MYELOID LEUKAEMIA
     Route: 048
     Dates: start: 20180731, end: 20180731
  28. FEBUXOSTAT. [Concomitant]
     Active Substance: FEBUXOSTAT
     Dosage: 20 MILLIGRAM
     Route: 048
     Dates: start: 20180816
  29. CALCICOL [Concomitant]
     Active Substance: CALCIUM GLUCONATE
     Dosage: 15 MILLILITER
     Route: 041
     Dates: start: 20181207, end: 20181207
  30. ZOLPIDEM TARTRATE. [Concomitant]
     Active Substance: ZOLPIDEM TARTRATE
     Indication: INSOMNIA
     Dosage: 10 MILLIGRAM
     Route: 048
     Dates: start: 20180801, end: 20181015
  31. SODIUM PHOSPHATE [Concomitant]
     Active Substance: SODIUM PHOSPHATE
     Dosage: 80 MILLILITER
     Route: 041
     Dates: start: 20180918, end: 20180921
  32. SODIUM PHOSPHATE [Concomitant]
     Active Substance: SODIUM PHOSPHATE
     Dosage: 140 MILLILITER
     Route: 041
     Dates: start: 20181009, end: 20181013
  33. CALONAL [Concomitant]
     Active Substance: ACETAMINOPHEN
     Dosage: 400 MILLIGRAM
     Route: 048
     Dates: start: 20181003, end: 20181003
  34. CALONAL [Concomitant]
     Active Substance: ACETAMINOPHEN
     Dosage: 400 MILLIGRAM
     Route: 048
     Dates: start: 20181007, end: 20181007
  35. CALONAL [Concomitant]
     Active Substance: ACETAMINOPHEN
     Dosage: 400 MILLIGRAM
     Route: 048
     Dates: start: 20181008, end: 20181009
  36. MINOCYCLINE HCL [Concomitant]
     Active Substance: MINOCYCLINE HYDROCHLORIDE
     Dosage: 100 MILLIGRAM
     Route: 041
     Dates: start: 20181215, end: 20181231
  37. INSULIN ASPART [Concomitant]
     Active Substance: INSULIN ASPART
     Indication: HYPERGLYCAEMIA
     Dosage: 1 UNIT
     Route: 058
     Dates: start: 20190104
  38. VENETOCLAX. [Concomitant]
     Active Substance: VENETOCLAX
     Route: 048
     Dates: start: 20180801, end: 20180801
  39. HEPARIN [Concomitant]
     Active Substance: HEPARIN SODIUM
     Indication: COAGULOPATHY
     Dosage: 10 MILLILITER
     Route: 041
     Dates: start: 20180805
  40. ISOTONIC SODIUM CHLORIDE [Concomitant]
     Active Substance: SODIUM CHLORIDE
     Dosage: 100 MILLILITER
     Route: 041
     Dates: start: 20180805
  41. SODIUM PHOSPHATE [Concomitant]
     Active Substance: SODIUM PHOSPHATE
     Dosage: 140 MILLILITER
     Route: 041
     Dates: start: 20180928, end: 20180929
  42. SODIUM PHOSPHATE [Concomitant]
     Active Substance: SODIUM PHOSPHATE
     Dosage: 160 MILLILITER
     Route: 041
     Dates: start: 20181001, end: 20181001
  43. SODIUM PHOSPHATE [Concomitant]
     Active Substance: SODIUM PHOSPHATE
     Dosage: 140 MILLILITER
     Route: 041
     Dates: start: 20181002, end: 20181002
  44. CALONAL [Concomitant]
     Active Substance: ACETAMINOPHEN
     Dosage: 800 MILLIGRAM
     Route: 048
     Dates: start: 20180905, end: 20180906
  45. CALONAL [Concomitant]
     Active Substance: ACETAMINOPHEN
     Dosage: 400 MILLIGRAM
     Route: 048
     Dates: start: 20180919, end: 20180919
  46. CALONAL [Concomitant]
     Active Substance: ACETAMINOPHEN
     Dosage: 400 MILLIGRAM
     Route: 048
     Dates: start: 20180921, end: 20180921
  47. CALONAL [Concomitant]
     Active Substance: ACETAMINOPHEN
     Dosage: 400 MILLIGRAM
     Route: 048
     Dates: start: 20180928, end: 20180928
  48. BISOPROLOL [Concomitant]
     Active Substance: BISOPROLOL
     Indication: HYPERTENSION
     Dosage: .3 PERCENT
     Route: 062
     Dates: start: 20181209, end: 20181211
  49. MINOCYCLINE HCL [Concomitant]
     Active Substance: MINOCYCLINE HYDROCHLORIDE
     Dosage: 100 MILLIGRAM
     Route: 041
     Dates: start: 20181208, end: 20181213
  50. ZOSYN [Concomitant]
     Active Substance: PIPERACILLIN SODIUM\TAZOBACTAM SODIUM
     Dosage: 4.5 GRAM
     Route: 041
     Dates: start: 20180920, end: 20180920
  51. MAGNESIUM OXIDE. [Concomitant]
     Active Substance: MAGNESIUM OXIDE
     Dosage: 1500 MILLIGRAM
     Route: 048
     Dates: start: 20180823
  52. SODIUM PHOSPHATE [Concomitant]
     Active Substance: SODIUM PHOSPHATE
     Indication: HYPOPHOSPHATAEMIA
     Dosage: 20 MILLILITER
     Route: 041
     Dates: start: 20180808, end: 20180808
  53. SODIUM PHOSPHATE [Concomitant]
     Active Substance: SODIUM PHOSPHATE
     Dosage: 80 MILLILITER
     Route: 041
     Dates: start: 20180827, end: 20180902
  54. SODIUM PHOSPHATE [Concomitant]
     Active Substance: SODIUM PHOSPHATE
     Dosage: 120 MILLILITER
     Route: 041
     Dates: start: 20180910, end: 20180915
  55. SODIUM PHOSPHATE [Concomitant]
     Active Substance: SODIUM PHOSPHATE
     Dosage: 120 MILLILITER
     Route: 041
     Dates: start: 20180930, end: 20180930
  56. SODIUM PHOSPHATE [Concomitant]
     Active Substance: SODIUM PHOSPHATE
     Dosage: 160 MILLILITER
     Route: 041
     Dates: start: 20181007, end: 20181008
  57. CALONAL [Concomitant]
     Active Substance: ACETAMINOPHEN
     Dosage: 800 MILLIGRAM
     Route: 048
     Dates: start: 20180920, end: 20180920
  58. CALONAL [Concomitant]
     Active Substance: ACETAMINOPHEN
     Dosage: 400 MILLIGRAM
     Route: 048
     Dates: start: 20181004, end: 20181004
  59. CALONAL [Concomitant]
     Active Substance: ACETAMINOPHEN
     Dosage: 400 MILLIGRAM
     Route: 048
     Dates: start: 20181024, end: 20181024
  60. WHITE SOFT PARAFFIN [Concomitant]
     Active Substance: PARAFFIN
     Indication: DRY SKIN
     Dosage: .3 PERCENT
     Route: 061
     Dates: start: 20181208
  61. MINOCYCLINE HCL [Concomitant]
     Active Substance: MINOCYCLINE HYDROCHLORIDE
     Indication: FEBRILE NEUTROPENIA
     Dosage: 200 MILLIGRAM
     Route: 041
     Dates: start: 20181207, end: 20181207
  62. MINOCYCLINE HCL [Concomitant]
     Active Substance: MINOCYCLINE HYDROCHLORIDE
     Dosage: 100 MILLIGRAM
     Route: 041
     Dates: start: 20181214, end: 20181214
  63. DAPTOMYCIN. [Concomitant]
     Active Substance: DAPTOMYCIN
     Indication: FEBRILE NEUTROPENIA
     Dosage: 350 MILLIGRAM
     Route: 041
     Dates: start: 20181217, end: 20181218
  64. VENETOCLAX. [Concomitant]
     Active Substance: VENETOCLAX
     Route: 048
     Dates: start: 20181112, end: 20181206
  65. SOLDEM 3A [Concomitant]
     Active Substance: CARBOHYDRATES\POTASSIUM CHLORIDE\SODIUM CHLORIDE\SODIUM LACTATE
     Indication: TUMOUR LYSIS SYNDROME
     Route: 041
     Dates: start: 20180730
  66. CALCICOL [Concomitant]
     Active Substance: CALCIUM GLUCONATE
     Dosage: 15 MILLILITER
     Route: 041
     Dates: start: 20180923, end: 20181004
  67. ZOSYN [Concomitant]
     Active Substance: PIPERACILLIN SODIUM\TAZOBACTAM SODIUM
     Dosage: 18 GRAM
     Route: 041
     Dates: start: 20180801, end: 20180831
  68. ZOSYN [Concomitant]
     Active Substance: PIPERACILLIN SODIUM\TAZOBACTAM SODIUM
     Dosage: 13.5 GRAM
     Route: 041
     Dates: start: 20180915, end: 20180919
  69. POLAPREZINC [Concomitant]
     Active Substance: POLAPREZINC
     Indication: CHRONIC GASTRITIS
     Dosage: 150 MILLIGRAM
     Route: 048
     Dates: start: 20180801
  70. SODIUM PHOSPHATE [Concomitant]
     Active Substance: SODIUM PHOSPHATE
     Dosage: 100 MILLILITER
     Route: 041
     Dates: start: 20180903, end: 20180905
  71. SODIUM PHOSPHATE [Concomitant]
     Active Substance: SODIUM PHOSPHATE
     Dosage: 100 MILLILITER
     Route: 041
     Dates: start: 20180907, end: 20180909
  72. CALONAL [Concomitant]
     Active Substance: ACETAMINOPHEN
     Dosage: 400 MILLIGRAM
     Route: 048
     Dates: start: 20180923, end: 20180923
  73. CALONAL [Concomitant]
     Active Substance: ACETAMINOPHEN
     Dosage: 400 MILLIGRAM
     Route: 048
     Dates: start: 20181002, end: 20181002
  74. CALONAL [Concomitant]
     Active Substance: ACETAMINOPHEN
     Dosage: 400 MILLIGRAM
     Route: 048
     Dates: start: 20181023, end: 20181023
  75. ASPHAGEN [Concomitant]
     Indication: LIVER INJURY
     Dosage: 80 MILLILITER
     Route: 041
     Dates: start: 20181221
  76. MINOCYCLINE HCL [Concomitant]
     Active Substance: MINOCYCLINE HYDROCHLORIDE
     Dosage: 100 MILLIGRAM
     Route: 041
     Dates: start: 20190102
  77. VENETOCLAX. [Concomitant]
     Active Substance: VENETOCLAX
     Route: 048
     Dates: start: 20180802, end: 20180921
  78. GASMOTIN [Concomitant]
     Active Substance: MOSAPRIDE CITRATE
     Indication: CHRONIC GASTRITIS
     Dosage: 15 MILLIGRAM
     Route: 048
     Dates: start: 2015
  79. ISOTONIC SODIUM CHLORIDE [Concomitant]
     Active Substance: SODIUM CHLORIDE
     Indication: FLUID REPLACEMENT
     Dosage: 250 MILLILITER
     Route: 041
     Dates: start: 20180804
  80. SODIUM PHOSPHATE [Concomitant]
     Active Substance: SODIUM PHOSPHATE
     Dosage: 40 MILLIGRAM
     Route: 041
     Dates: start: 20180808, end: 20180808
  81. SODIUM PHOSPHATE [Concomitant]
     Active Substance: SODIUM PHOSPHATE
     Dosage: 60 MILLILITER
     Route: 041
     Dates: start: 20180818, end: 20180818
  82. HEPARINOID [Concomitant]
     Active Substance: CHONDROITIN SULFATE (BOVINE)
     Indication: DRY SKIN
     Route: 061
     Dates: start: 20180912
  83. CALONAL [Concomitant]
     Active Substance: ACETAMINOPHEN
     Indication: FEBRILE NEUTROPENIA
     Dosage: 400 MILLIGRAM
     Route: 048
     Dates: start: 20180904, end: 20180904
  84. CALCICOL [Concomitant]
     Active Substance: CALCIUM GLUCONATE
     Dosage: 30 MILLILITER
     Route: 041
     Dates: start: 20190102
  85. MAGNESIUM OXIDE. [Concomitant]
     Active Substance: MAGNESIUM OXIDE
     Indication: CONSTIPATION
     Dosage: 500 MILLIGRAM
     Route: 048
     Dates: start: 20180803, end: 20180822
  86. CANCIDAS [Concomitant]
     Active Substance: CASPOFUNGIN ACETATE
     Indication: BRONCHOPULMONARY ASPERGILLOSIS
     Dosage: 100 MILLIGRAM
     Route: 041
     Dates: start: 20180804, end: 20180930
  87. SODIUM PHOSPHATE [Concomitant]
     Active Substance: SODIUM PHOSPHATE
     Dosage: 80 MILLILITER
     Route: 041
     Dates: start: 20180819, end: 20180824
  88. SODIUM PHOSPHATE [Concomitant]
     Active Substance: SODIUM PHOSPHATE
     Dosage: 60 MILLILITER
     Route: 041
     Dates: start: 20180824, end: 20180826
  89. SODIUM PHOSPHATE [Concomitant]
     Active Substance: SODIUM PHOSPHATE
     Dosage: 120 MILLILITER
     Route: 041
     Dates: start: 20180906, end: 20180906
  90. SODIUM PHOSPHATE [Concomitant]
     Active Substance: SODIUM PHOSPHATE
     Dosage: 140 MILLILITER
     Route: 041
     Dates: start: 20181006, end: 20181006
  91. CALONAL [Concomitant]
     Active Substance: ACETAMINOPHEN
     Dosage: 800 MILLIGRAM
     Route: 048
     Dates: start: 20180915, end: 20180915
  92. SOLDACTONE [Concomitant]
     Active Substance: CANRENOATE POTASSIUM
     Indication: OEDEMA
     Dosage: 100 MILLIGRAM
     Route: 041
     Dates: start: 20181207

REACTIONS (1)
  - Neutropenic colitis [Recovered/Resolved]

NARRATIVE: CASE EVENT DATE: 20180920
